FAERS Safety Report 17562717 (Version 3)
Quarter: 2020Q2

REPORT INFORMATION
  Report Type: Spontaneous
  Country: BE (occurrence: BE)
  Receive Date: 20200319
  Receipt Date: 20200625
  Transmission Date: 20200713
  Serious: Yes (Other)
  Sender: FDA-Public Use
  Company Number: BE-TAKEDA-2020TUS014913

PATIENT
  Sex: Male

DRUGS (1)
  1. VELCADE [Suspect]
     Active Substance: BORTEZOMIB
     Indication: AUTOIMMUNE HAEMOLYTIC ANAEMIA
     Dosage: 1.3 MILLIGRAM/SQ. METER
     Route: 065

REACTIONS (7)
  - White blood cell count decreased [Unknown]
  - Off label use [Unknown]
  - Platelet count decreased [Unknown]
  - Gastrointestinal stoma output increased [Unknown]
  - Diarrhoea [Unknown]
  - Product use in unapproved indication [Unknown]
  - Transaminases increased [Unknown]
